FAERS Safety Report 18569036 (Version 1)
Quarter: 2020Q4

REPORT INFORMATION
  Report Type: Spontaneous
  Country: US (occurrence: US)
  Receive Date: 20201201
  Receipt Date: 20201201
  Transmission Date: 20210114
  Serious: Yes (Other)
  Sender: FDA-Public Use
  Company Number: None

PATIENT
  Age: 50 Year
  Sex: Female
  Weight: 117 kg

DRUGS (1)
  1. BUPRENORPHINE. [Suspect]
     Active Substance: BUPRENORPHINE
     Route: 062
     Dates: start: 20200902, end: 20200929

REACTIONS (4)
  - Respiratory failure [None]
  - Confusional state [None]
  - Somnolence [None]
  - Condition aggravated [None]

NARRATIVE: CASE EVENT DATE: 20201004
